FAERS Safety Report 7344542 (Version 2)
Quarter: 2016Q3

REPORT INFORMATION
  Report Type: Report from Study
  Country: CN (occurrence: CN)
  Receive Date: 20100405
  Receipt Date: 20160722
  Transmission Date: 20161109
  Serious: Yes (Hospitalization)
  Sender: FDA-Public Use
  Company Number: CN-ROCHE-694655

PATIENT
  Age: 52 Year
  Sex: Male
  Weight: 62 kg

DRUGS (8)
  1. TOCILIZUMAB [Suspect]
     Active Substance: TOCILIZUMAB
     Indication: RHEUMATOID ARTHRITIS
     Dosage: LAST DOSE PRIOR TO SAE: 5 MARCH 2010
     Route: 042
     Dates: start: 20091012, end: 20100309
  2. ANTINE [Concomitant]
     Route: 065
     Dates: start: 201006, end: 20100721
  3. FOLIC ACID. [Concomitant]
     Active Substance: FOLIC ACID
     Route: 065
  4. ACECLOFENAC [Concomitant]
     Active Substance: ACECLOFENAC
     Dosage: ACECLOFENAC-HAIXIN
     Route: 065
  5. PAEONIA OFFICINALIS [Concomitant]
     Dosage: TOTAL GLUCOSIDES OF PAONY CAPSULES
     Route: 065
  6. PLACEBO [Suspect]
     Active Substance: UNSPECIFIED INGREDIENT
     Indication: RHEUMATOID ARTHRITIS
     Route: 042
     Dates: start: 20090427, end: 20090914
  7. HYDROXYCHLOROQUINE [Concomitant]
     Active Substance: HYDROXYCHLOROQUINE
     Route: 065
  8. METHOTREXATE. [Concomitant]
     Active Substance: METHOTREXATE
     Route: 065

REACTIONS (2)
  - Granuloma [Recovering/Resolving]
  - Lung infection [Not Recovered/Not Resolved]

NARRATIVE: CASE EVENT DATE: 20100329
